FAERS Safety Report 8576770-8 (Version None)
Quarter: 2012Q3

REPORT INFORMATION
  Report Type: 
  Country: None (occurrence: None)
  Receive Date: 20120807
  Receipt Date: 20120723
  Transmission Date: 20120928
  Serious: Yes (Other)
  Sender: FDA-Public Use
  Company Number: ES-WATSON-2012-13377

PATIENT
  Age: 19 Year
  Sex: Female

DRUGS (2)
  1. HYDROXYCHLOROQUINE SULFATE [Suspect]
     Indication: AUTOIMMUNE DISORDER
     Dosage: UNK
     Route: 065
  2. RIFAMPICIN [Suspect]
     Indication: AUTOIMMUNE DISORDER
     Dosage: UNK
     Route: 065

REACTIONS (10)
  - DRUG INTERACTION [None]
  - PLEURAL EFFUSION [None]
  - LYMPHADENOPATHY [None]
  - LEUKOPENIA [None]
  - KLEBSIELLA INFECTION [None]
  - RENAL FAILURE ACUTE [None]
  - TOXIC SKIN ERUPTION [None]
  - ANAEMIA [None]
  - CONDITION AGGRAVATED [None]
  - AUTOIMMUNE DISORDER [None]
